FAERS Safety Report 15585435 (Version 7)
Quarter: 2020Q2

REPORT INFORMATION
  Report Type: Report from Study
  Country: JP (occurrence: JP)
  Receive Date: 20181102
  Receipt Date: 20200616
  Transmission Date: 20200713
  Serious: Yes (Hospitalization)
  Sender: FDA-Public Use
  Company Number: JP-EISAI MEDICAL RESEARCH-EC-2018-047173

PATIENT
  Age: 70 Year
  Sex: Male
  Weight: 73 kg

DRUGS (15)
  1. LICKLE [Concomitant]
     Active Substance: ISOLEUCINE\LEUCINE\VALINE
  2. AMINOLEBAN EN [Concomitant]
     Active Substance: UNSPECIFIED INGREDIENT
  3. LACTULOSE. [Concomitant]
     Active Substance: LACTULOSE
  4. MONILAC [Concomitant]
     Active Substance: LACTULOSE
  5. NEXIUM [Concomitant]
     Active Substance: ESOMEPRAZOLE MAGNESIUM
  6. MAGNESIUM OXIDE. [Concomitant]
     Active Substance: MAGNESIUM OXIDE
  7. LENVIMA [Suspect]
     Active Substance: LENVATINIB
     Dosage: 8 MG ON A 5 DAYS ON/2 DAYS OFF REGIMEN
     Route: 048
     Dates: start: 20181003, end: 20181017
  8. LENVIMA [Suspect]
     Active Substance: LENVATINIB
     Dosage: 4 MG IN A 5 DAYS ON/2 DAYS OFF REGIMEN
     Route: 048
     Dates: start: 20181115, end: 20181126
  9. KANAMYCIN [Concomitant]
     Active Substance: KANAMYCIN A SULFATE
  10. SENNOSIDE [Concomitant]
     Active Substance: SENNOSIDES
  11. LENVIMA [Suspect]
     Active Substance: LENVATINIB
     Indication: HEPATOCELLULAR CARCINOMA
     Route: 048
     Dates: start: 20180918, end: 20180928
  12. SPIRONOLACTONE. [Concomitant]
     Active Substance: SPIRONOLACTONE
  13. CARNITINE CHLORIDE [Concomitant]
     Active Substance: CARNITINE CHLORIDE
  14. LENVIMA [Suspect]
     Active Substance: LENVATINIB
     Route: 048
     Dates: start: 20181001, end: 20181002
  15. ZINC. [Concomitant]
     Active Substance: ZINC

REACTIONS (1)
  - Hepatic encephalopathy [Recovered/Resolved]

NARRATIVE: CASE EVENT DATE: 20181018
